FAERS Safety Report 4421852-5 (Version None)
Quarter: 2004Q3

REPORT INFORMATION
  Report Type: 
  Country: None (occurrence: None)
  Receive Date: 20040802
  Receipt Date: 20040802
  Transmission Date: 20050211
  Serious: Yes (Other)
  Sender: FDA-Public Use
  Company Number: None

PATIENT
  Age: 63 Year
  Sex: Male
  Weight: 62.9 kg

DRUGS (18)
  1. FLUNISOLIDE [Suspect]
  2. OMEPRAZOLE [Concomitant]
  3. ALBUTEROL [Concomitant]
  4. FORMOTEROL FUMATE INHL [Concomitant]
  5. DILTAZEM (INWOOD/TIAZAC) [Concomitant]
  6. SIMVASTATIN [Concomitant]
  7. ALBUTEROL 90/ IPRATROP INHL [Concomitant]
  8. FLUNISOLIDE NASAL INH [Concomitant]
  9. LANOXIN [Concomitant]
  10. METOPROLOL TARTRATE [Concomitant]
  11. NITROGLYCERIN [Concomitant]
  12. COUMADIN [Concomitant]
  13. PRECISION Q-I-D GLUCOSE TEST STRIP [Concomitant]
  14. ALPRAZOLAM [Concomitant]
  15. FORMOTEROL FUMARATE [Concomitant]
  16. METFORMIN HCL [Concomitant]
  17. CILOSTAZOL [Concomitant]
  18. TRETIMOIN [Concomitant]

REACTIONS (2)
  - NASAL DISCOMFORT [None]
  - THROAT IRRITATION [None]
